FAERS Safety Report 5568447-8 (Version None)
Quarter: 2007Q4

REPORT INFORMATION
  Report Type: 
  Country: None (occurrence: None)
  Receive Date: 20071220
  Receipt Date: 20071210
  Transmission Date: 20080405
  Serious: Yes (Hospitalization)
  Sender: FDA-Public Use
  Company Number: US-ABBOTT-07P-163-0428397-00

PATIENT
  Sex: Male
  Weight: 115 kg

DRUGS (3)
  1. HUMIRA [Suspect]
     Indication: CROHN'S DISEASE
     Route: 058
     Dates: start: 20071206
  2. AZATHIOPRINE [Suspect]
     Indication: CROHN'S DISEASE
     Dosage: IN THE AM
     Route: 048
     Dates: start: 20071101, end: 20071209
  3. VICODIN [Concomitant]
     Indication: BACK PAIN

REACTIONS (1)
  - PANCREATITIS [None]
